FAERS Safety Report 5756229-3 (Version None)
Quarter: 2008Q2

REPORT INFORMATION
  Report Type: 
  Country: None (occurrence: None)
  Receive Date: 20080602
  Receipt Date: 20080521
  Transmission Date: 20081010
  Serious: Yes (Other)
  Sender: FDA-Public Use
  Company Number: JP-PFIZER INC-2008034544

PATIENT
  Age: 84 Year
  Sex: Female

DRUGS (10)
  1. ZOLOFT [Suspect]
     Indication: DEPRESSION
     Dosage: DAILY DOSE:75MG-FREQ:DAILY
     Route: 048
     Dates: start: 20080212, end: 20080415
  2. RISPERDAL [Concomitant]
     Route: 048
     Dates: start: 20070801, end: 20080415
  3. ARTANE [Concomitant]
     Route: 048
  4. LIPITOR [Concomitant]
     Route: 048
  5. PLAVIX [Concomitant]
     Route: 048
  6. HALCION [Concomitant]
     Route: 048
  7. OMEPRAZOLE [Concomitant]
     Route: 048
  8. CONIEL [Concomitant]
     Route: 048
  9. MUCOSTA [Concomitant]
     Route: 048
  10. OLMETEC [Concomitant]
     Route: 048

REACTIONS (7)
  - ABDOMINAL PAIN UPPER [None]
  - ALANINE AMINOTRANSFERASE INCREASED [None]
  - ASPARTATE AMINOTRANSFERASE INCREASED [None]
  - BLOOD ALKALINE PHOSPHATASE INCREASED [None]
  - BLOOD LACTATE DEHYDROGENASE INCREASED [None]
  - GAMMA-GLUTAMYLTRANSFERASE INCREASED [None]
  - PYREXIA [None]
